FAERS Safety Report 7103394-1 (Version None)
Quarter: 2010Q4

REPORT INFORMATION
  Report Type: 
  Country: None (occurrence: None)
  Receive Date: 20101115
  Receipt Date: 20101104
  Transmission Date: 20110411
  Serious: Yes (Hospitalization)
  Sender: FDA-Public Use
  Company Number: ES-BAYER-201044788GPV

PATIENT
  Age: 70 Year
  Sex: Female

DRUGS (1)
  1. ACTIRA 400 MG COMPRIMIDOS RECUBIERTOS CON PELICULA , 7 COMPRIMIDOS [Suspect]
     Route: 048
     Dates: start: 20100101, end: 20100101

REACTIONS (2)
  - BRONCHOSPASM [None]
  - WRONG DRUG ADMINISTERED [None]
